FAERS Safety Report 20959159 (Version 1)
Quarter: 2022Q2

REPORT INFORMATION
  Report Type: Report from Study
  Country: NL (occurrence: NL)
  Receive Date: 20220614
  Receipt Date: 20220614
  Transmission Date: 20220721
  Serious: Yes (Other)
  Sender: FDA-Public Use
  Company Number: NL-ABBVIE-22K-114-4432669-00

PATIENT
  Sex: Female

DRUGS (2)
  1. CARBIDOPA\LEVODOPA [Suspect]
     Active Substance: CARBIDOPA\LEVODOPA
     Indication: Parkinson^s disease
     Route: 050
     Dates: start: 20201207
  2. CARBIDOPA\LEVODOPA [Suspect]
     Active Substance: CARBIDOPA\LEVODOPA

REACTIONS (10)
  - Pelvic fracture [Not Recovered/Not Resolved]
  - Mobility decreased [Not Recovered/Not Resolved]
  - Restlessness [Not Recovered/Not Resolved]
  - Device difficult to use [Unknown]
  - Bowel movement irregularity [Not Recovered/Not Resolved]
  - Decreased appetite [Not Recovered/Not Resolved]
  - Abnormal dreams [Not Recovered/Not Resolved]
  - Fall [Not Recovered/Not Resolved]
  - On and off phenomenon [Unknown]
  - Nausea [Unknown]

NARRATIVE: CASE EVENT DATE: 20220101
